FAERS Safety Report 7249927-6 (Version None)
Quarter: 2011Q1

REPORT INFORMATION
  Report Type: 
  Country: None (occurrence: None)
  Receive Date: 20110128
  Receipt Date: 20110114
  Transmission Date: 20110831
  Serious: No
  Sender: FDA-Public Use
  Company Number: A0881699A

PATIENT
  Age: 56 Year
  Sex: Female
  Weight: 58.2 kg

DRUGS (8)
  1. WELLBUTRIN [Suspect]
     Indication: DEPRESSION
     Route: 048
     Dates: start: 19920101
  2. BUPROPION HCL [Suspect]
     Route: 065
  3. FOLATE [Concomitant]
     Dosage: .25TAB PER DAY
  4. SYNTHROID [Concomitant]
     Dosage: 137MCG PER DAY
  5. CYTOMEL [Concomitant]
     Dosage: 2.5MCG FOUR TIMES PER DAY
  6. FLAX SEED OIL [Concomitant]
     Dosage: 750MG TWICE PER DAY
  7. NASCOBAL [Concomitant]
     Dosage: 1000MCG PER DAY
     Route: 045
  8. PROBIOTIC [Concomitant]
     Dosage: 1000MG PER DAY

REACTIONS (3)
  - PRODUCT QUALITY ISSUE [None]
  - FEELING ABNORMAL [None]
  - DRUG INEFFECTIVE [None]
